FAERS Safety Report 26127049 (Version 1)
Quarter: 2025Q4

REPORT INFORMATION
  Report Type: Spontaneous
  Country: JP (occurrence: JP)
  Receive Date: 20251205
  Receipt Date: 20251205
  Transmission Date: 20260118
  Serious: Yes (Other)
  Sender: ELI LILLY AND COMPANY
  Company Number: JP-ELI_LILLY_AND_COMPANY-JP202512005644

PATIENT
  Age: 90 Year
  Sex: Male

DRUGS (3)
  1. GEMCITABINE HYDROCHLORIDE [Suspect]
     Active Substance: GEMCITABINE HYDROCHLORIDE
     Indication: Gallbladder adenocarcinoma
     Route: 065
  2. CISPLATIN [Concomitant]
     Active Substance: CISPLATIN
     Indication: Gallbladder adenocarcinoma
  3. PEMBROLIZUMAB [Concomitant]
     Active Substance: PEMBROLIZUMAB
     Indication: Gallbladder adenocarcinoma

REACTIONS (6)
  - Cholangitis [Unknown]
  - Blood culture positive [Unknown]
  - Delirium [Recovered/Resolved]
  - Thrombophlebitis migrans [Recovered/Resolved]
  - Decreased appetite [Unknown]
  - Nausea [Unknown]
